FAERS Safety Report 4333387-9 (Version None)
Quarter: 2004Q1

REPORT INFORMATION
  Report Type: 
  Country: None (occurrence: None)
  Receive Date: 20040329
  Receipt Date: 20040227
  Transmission Date: 20041129
  Serious: No
  Sender: FDA-Public Use
  Company Number: 04P-163-0251611-00

PATIENT
  Age: 59 Year
  Sex: Female

DRUGS (18)
  1. HUMIRA [Suspect]
     Indication: RHEUMATOID ARTHRITIS
     Dosage: 40 MG, 1 IN 2 WK, SUBCUTANEOUS
     Route: 058
     Dates: start: 20040213
  2. PREDNISONE [Concomitant]
  3. CLINDAMYCIN HCL [Concomitant]
  4. ETANERCEPT [Concomitant]
  5. FOLIC ACID [Concomitant]
  6. ESOMEPRAZOLE [Concomitant]
  7. HYZAAR [Concomitant]
  8. OMEPRAZOLE [Concomitant]
  9. CELECOXIB [Concomitant]
  10. CONJUGATED ESTROGEN [Concomitant]
  11. LEVOTHYROXINE SODIUM [Concomitant]
  12. ASPIRIN [Concomitant]
  13. PRAVASTATIN SODIUM [Concomitant]
  14. DOCUSATE SODIUM [Concomitant]
  15. AMITRIPTYLINE HYDROCHLORIDE [Concomitant]
  16. ALPRAZOLAM [Concomitant]
  17. BUPROPION HYDROCHLORIDE [Concomitant]
  18. VICODIN [Concomitant]

REACTIONS (2)
  - CONDITION AGGRAVATED [None]
  - ORAL FUNGAL INFECTION [None]
